FAERS Safety Report 7583023-3 (Version None)
Quarter: 2011Q2

REPORT INFORMATION
  Report Type: 
  Country: None (occurrence: None)
  Receive Date: 20110527
  Receipt Date: 20101129
  Transmission Date: 20111010
  Serious: Yes (Hospitalization, Other)
  Sender: FDA-Public Use
  Company Number: US201002003459

PATIENT
  Age: 66 Year
  Sex: Male
  Weight: 1114.3 kg

DRUGS (12)
  1. ANTIHYPERTENSIVES [Concomitant]
  2. LOVASTATIN [Concomitant]
  3. METFORMIN HCL [Concomitant]
  4. OMEPRAZOLE [Concomitant]
  5. ASPIRIN [Concomitant]
  6. TRAMADOL HCL [Concomitant]
  7. GLIPIZIDE [Concomitant]
  8. BYETTA [Suspect]
     Dosage: 10 UG, 2/D
     Dates: start: 20050501
  9. BYETTA [Suspect]
     Dosage: 10 UG, 2/D
     Dates: start: 20070101, end: 20070101
  10. BYETTA [Suspect]
     Dosage: 10 UG, 2/D
     Dates: end: 20080201
  11. EXENATIDE PEN (EXENATIDE PEN) [Concomitant]
  12. LISINOPRIL [Concomitant]

REACTIONS (4)
  - CONSTIPATION [None]
  - PANCREATITIS ACUTE [None]
  - PANCREATITIS [None]
  - WEIGHT DECREASED [None]
